FAERS Safety Report 11079810 (Version 2)
Quarter: 2015Q2

REPORT INFORMATION
  Report Type: Spontaneous
  Country: ES (occurrence: ES)
  Receive Date: 20150430
  Receipt Date: 20150521
  Transmission Date: 20150821
  Serious: Yes (Hospitalization, Other)
  Sender: FDA-Public Use
  Company Number: ES-AMGEN-ESPSP2015041426

PATIENT
  Age: 78 Year
  Sex: Female

DRUGS (12)
  1. ARTILOG [Concomitant]
     Active Substance: CELECOXIB
     Dosage: 200 UNK, QD
  2. PROLIA [Suspect]
     Active Substance: DENOSUMAB
     Indication: OSTEOPOROSIS
     Dosage: 60 MG, Q6MO
     Route: 058
     Dates: start: 201401, end: 201504
  3. CELECOXIB. [Concomitant]
     Active Substance: CELECOXIB
     Indication: RHEUMATOID ARTHRITIS
     Dosage: 200 MG, QD
     Route: 048
  4. CALCIUM CARBONATE. [Concomitant]
     Active Substance: CALCIUM CARBONATE
  5. PARIET [Concomitant]
     Active Substance: RABEPRAZOLE SODIUM
  6. PREGABALIN. [Concomitant]
     Active Substance: PREGABALIN
     Indication: SCIATICA
     Dosage: 25 MG, QD
     Route: 048
  7. PROTELOS [Concomitant]
     Active Substance: STRONTIUM RANELATE
     Dosage: UNK
     Dates: start: 201304
  8. ALDOQUIN [Concomitant]
     Dosage: 200 MG, QOD
  9. LYRICA [Concomitant]
     Active Substance: PREGABALIN
     Dosage: 20 UNK, UNK
  10. CALCIUM W/ERGOCALCIFEROL [Concomitant]
     Dosage: 1 TAB CALCIUM 400 VIT. D
     Route: 048
  11. HIDROFEROL [Concomitant]
     Active Substance: CALCIFEDIOL
  12. HYDROXYCHLOROQUINE [Concomitant]
     Active Substance: HYDROXYCHLOROQUINE
     Indication: RHEUMATOID ARTHRITIS
     Dosage: 200 MG, EVERY 48 HR
     Route: 048

REACTIONS (1)
  - Atypical femur fracture [Recovered/Resolved]

NARRATIVE: CASE EVENT DATE: 20141117
